FAERS Safety Report 25982885 (Version 1)
Quarter: 2025Q4

REPORT INFORMATION
  Report Type: Other
  Country: EU (occurrence: EU)
  Receive Date: 20251031
  Receipt Date: 20251031
  Transmission Date: 20260119
  Serious: Yes (Death)
  Sender: ZYDUS PHARM
  Company Number: None

PATIENT

DRUGS (10)
  1. PEMETREXED [Suspect]
     Active Substance: PEMETREXED
     Indication: Lung adenocarcinoma
     Dosage: 580 MILLIGRAM 1 CYCLICAL
     Route: 042
     Dates: start: 20250512, end: 20250718
  2. CARBOPLATIN [Suspect]
     Active Substance: CARBOPLATIN
     Indication: Lung adenocarcinoma
     Dosage: 580 MILLIGRAM 1 CYCLICAL
     Route: 042
     Dates: start: 20250512, end: 20250718
  3. AMIVANTAMAB [Suspect]
     Active Substance: AMIVANTAMAB
     Indication: Lung adenocarcinoma
     Dosage: 350 MILLIGRAM 1 CYCLICAL
     Route: 042
     Dates: start: 20250512, end: 20250512
  4. AMIVANTAMAB [Suspect]
     Active Substance: AMIVANTAMAB
     Dosage: 1400 MILLIGRAM 1 CYCLICAL
     Route: 042
     Dates: start: 20250513, end: 20250513
  5. AMIVANTAMAB [Suspect]
     Active Substance: AMIVANTAMAB
     Dosage: 1750 MILLIGRAM 1 CYCLICAL
     Route: 042
     Dates: start: 20250519, end: 20250519
  6. AMIVANTAMAB [Suspect]
     Active Substance: AMIVANTAMAB
     Dosage: 1750 MILLIGRAM 1 CYCLICAL
     Route: 042
     Dates: start: 20250526, end: 20250526
  7. AMIVANTAMAB [Suspect]
     Active Substance: AMIVANTAMAB
     Dosage: 1750 MILLIGRAM 1 CYCLICAL
     Route: 042
     Dates: start: 20250603, end: 20250603
  8. AMIVANTAMAB [Suspect]
     Active Substance: AMIVANTAMAB
     Dosage: 1750 MILLIGRAM 1 CYCLICAL
     Route: 042
     Dates: start: 20250624, end: 20250624
  9. AMIVANTAMAB [Suspect]
     Active Substance: AMIVANTAMAB
     Dosage: 1750 MILLIGRAM 1 CYCLICAL
     Route: 042
     Dates: start: 20250718, end: 20250718
  10. ENHERTU [Concomitant]
     Active Substance: FAM-TRASTUZUMAB DERUXTECAN-NXKI
     Indication: Lung adenocarcinoma
     Dosage: 1 MILLIGRAM 1 CYCLICAL
     Route: 042
     Dates: start: 20250828

REACTIONS (1)
  - Interstitial lung disease [Fatal]

NARRATIVE: CASE EVENT DATE: 20250827
